FAERS Safety Report 11198156 (Version 3)
Quarter: 2017Q4

REPORT INFORMATION
  Report Type: Report from Study
  Country: US (occurrence: US)
  Receive Date: 20150618
  Receipt Date: 20171003
  Transmission Date: 20180320
  Serious: Yes (Hospitalization)
  Sender: FDA-Public Use
  Company Number: US-AMGEN-USASL2015058195

PATIENT
  Age: 58 Year
  Sex: Female

DRUGS (2)
  1. SULFASALAZINE. [Suspect]
     Active Substance: SULFASALAZINE
     Indication: PRODUCT USED FOR UNKNOWN INDICATION
     Dosage: UNK
     Route: 065
  2. ENBREL [Suspect]
     Active Substance: ETANERCEPT
     Indication: RHEUMATOID ARTHRITIS
     Dosage: 50 MG, QWK
     Route: 065
     Dates: start: 20150129

REACTIONS (5)
  - Rash [Unknown]
  - Intracranial aneurysm [Recovering/Resolving]
  - Swelling [Unknown]
  - Memory impairment [Not Recovered/Not Resolved]
  - Slow speech [Not Recovered/Not Resolved]

NARRATIVE: CASE EVENT DATE: 2015
